FAERS Safety Report 23686493 (Version 2)
Quarter: 2024Q2

REPORT INFORMATION
  Report Type: Other
  Country: JP (occurrence: JP)
  Receive Date: 20240329
  Receipt Date: 20240404
  Transmission Date: 20240715
  Serious: Yes (Death, Life-Threatening, Hospitalization)
  Sender: FDA-Public Use
  Company Number: JP-CHUGAI-2024009001

PATIENT
  Age: 81 Year
  Sex: Male
  Weight: 75.5 kg

DRUGS (13)
  1. TECENTRIQ [Suspect]
     Active Substance: ATEZOLIZUMAB
     Indication: Hepatocellular carcinoma
     Dosage: 1200 MILLIGRAM, SINGLE
     Route: 065
     Dates: start: 20210302, end: 20210302
  2. AVASTIN [Suspect]
     Active Substance: BEVACIZUMAB
     Indication: Hepatocellular carcinoma
     Dosage: 1035 MILLIGRAM, SINGLE
     Route: 065
     Dates: start: 20210302, end: 20210302
  3. SPIRONOLACTONE [Concomitant]
     Active Substance: SPIRONOLACTONE
  4. TERAZOSIN HYDROCHLORIDE [Concomitant]
     Active Substance: TERAZOSIN HYDROCHLORIDE
  5. ATENOLOL [Concomitant]
     Active Substance: ATENOLOL
  6. NIFEDIPINE [Concomitant]
     Active Substance: NIFEDIPINE
  7. LASIX [Concomitant]
     Active Substance: FUROSEMIDE
  8. EDOXABAN TOSYLATE [Concomitant]
     Active Substance: EDOXABAN TOSYLATE
  9. RABEPRAZOLE SODIUM [Concomitant]
     Active Substance: RABEPRAZOLE SODIUM
  10. PREDONINE [Concomitant]
     Active Substance: PREDNISOLONE
  11. ALLOPURINOL [Concomitant]
     Active Substance: ALLOPURINOL
  12. PIPERACILLIN HYDRATE [Concomitant]
  13. REBAMIPIDE [Concomitant]
     Active Substance: REBAMIPIDE

REACTIONS (9)
  - Pneumonia [Recovering/Resolving]
  - Interstitial lung disease [Recovering/Resolving]
  - Aspiration [Fatal]
  - Asphyxia [Fatal]
  - Cardiac arrest [Fatal]
  - Cardio-respiratory arrest [Fatal]
  - Bradycardia [Fatal]
  - Blood pressure decreased [Fatal]
  - Staphylococcus test positive [Recovering/Resolving]

NARRATIVE: CASE EVENT DATE: 20210314
